FAERS Safety Report 5056315-X (Version None)
Quarter: 2006Q3

REPORT INFORMATION
  Report Type: 
  Country: None (occurrence: None)
  Receive Date: 20060717
  Receipt Date: 20060706
  Transmission Date: 20061208
  Serious: Yes (Hospitalization)
  Sender: FDA-Public Use
  Company Number: 2006074044

PATIENT
  Age: 68 Year
  Sex: Female

DRUGS (3)
  1. CELEBRA (CELECOXIB) [Suspect]
     Indication: SYNOVITIS
     Dosage: 200 MG (200 MG, 1 IN 1 D), ORAL
     Route: 048
     Dates: start: 20000101
  2. NATRILIX (INDAPAMIDE) [Concomitant]
  3. LIPITOR [Concomitant]

REACTIONS (3)
  - ARTHRALGIA [None]
  - DRUG INEFFECTIVE [None]
  - SURGERY [None]
